FAERS Safety Report 6492052-2 (Version None)
Quarter: 2009Q4

REPORT INFORMATION
  Report Type: 
  Country: None (occurrence: None)
  Receive Date: 20091125
  Receipt Date: 20090325
  Transmission Date: 20100525
  Serious: Yes (Hospitalization)
  Sender: FDA-Public Use
  Company Number: 2009BH004770

PATIENT
  Age: 67 Year
  Sex: Female

DRUGS (11)
  1. DIANEAL [Suspect]
     Indication: PERITONEAL DIALYSIS
     Dosage: ; IP
     Route: 033
     Dates: start: 20080101
  2. DIANEAL [Suspect]
     Indication: PERITONEAL DIALYSIS
     Dosage: ;IP
     Route: 033
  3. ZEMPLAR [Concomitant]
  4. METOPROLOL [Concomitant]
  5. OXYCODONE [Concomitant]
  6. RENVELA [Concomitant]
  7. K-DUR [Concomitant]
  8. HUMALOG [Concomitant]
  9. VITAMINS [Concomitant]
  10. COENZYME Q10 [Concomitant]
  11. MOBIC [Concomitant]

REACTIONS (5)
  - CHILLS [None]
  - CONSTIPATION [None]
  - NAUSEA [None]
  - PERITONITIS BACTERIAL [None]
  - VOMITING [None]
